FAERS Safety Report 6245345-8 (Version None)
Quarter: 2009Q2

REPORT INFORMATION
  Report Type: 
  Country: None (occurrence: None)
  Receive Date: 20090625
  Receipt Date: 20090616
  Transmission Date: 20091009
  Serious: Yes (Other)
  Sender: FDA-Public Use
  Company Number: FR-PFIZER INC-2009193506

PATIENT
  Age: 76 Year

DRUGS (2)
  1. INSPRA [Suspect]
     Indication: CARDIAC FAILURE
     Dosage: 0.5 DF, ALTERNATE DAY
     Route: 048
     Dates: start: 20090201, end: 20090320
  2. BUMEX [Suspect]
     Dosage: 1 DF, ALTERNATE DAY
     Dates: start: 20090101, end: 20090101

REACTIONS (4)
  - ABNORMAL LOSS OF WEIGHT [None]
  - ASTHENIA [None]
  - DECREASED APPETITE [None]
  - RENAL FAILURE [None]
